FAERS Safety Report 14022213 (Version 1)
Quarter: 2017Q3

REPORT INFORMATION
  Report Type: Spontaneous
  Country: DE (occurrence: DE)
  Receive Date: 20170928
  Receipt Date: 20170928
  Transmission Date: 20171128
  Serious: Yes (Death, Other)
  Sender: FDA-Public Use
  Company Number: DE-009507513-1709DEU013657

PATIENT
  Age: 45 Year
  Sex: Male

DRUGS (3)
  1. KEYTRUDA [Suspect]
     Active Substance: PEMBROLIZUMAB
     Indication: NON-SMALL CELL LUNG CANCER
     Dosage: FIRST CYCLE
  2. KEYTRUDA [Suspect]
     Active Substance: PEMBROLIZUMAB
     Dosage: SECOND CYCLE
  3. PLATINUM [Concomitant]
     Active Substance: PLATINUM
     Indication: NON-SMALL CELL LUNG CANCER

REACTIONS (1)
  - Non-small cell lung cancer [Fatal]
